FAERS Safety Report 17286361 (Version 2)
Quarter: 2020Q1

REPORT INFORMATION
  Report Type: Spontaneous
  Country: KZ (occurrence: KZ)
  Receive Date: 20200118
  Receipt Date: 20200121
  Transmission Date: 20200409
  Serious: Yes (Other)
  Sender: FDA-Public Use
  Company Number: NVSC2019KZ030577

PATIENT
  Age: 58 Year
  Sex: Female

DRUGS (1)
  1. UPERIO [Suspect]
     Active Substance: SACUBITRIL\VALSARTAN
     Indication: PRODUCT USED FOR UNKNOWN INDICATION
     Dosage: 200 MG, BID (WITH TITRATION FOR A YEAR)
     Route: 048
     Dates: end: 20190926

REACTIONS (5)
  - Malaise [Unknown]
  - Bladder cancer [Unknown]
  - Dyspnoea [Unknown]
  - Blood creatinine increased [Unknown]
  - Chest pain [Unknown]

NARRATIVE: CASE EVENT DATE: 20190901
